FAERS Safety Report 9515912 (Version 10)
Quarter: 2015Q3

REPORT INFORMATION
  Report Type: Report from Study
  Country: US (occurrence: US)
  Receive Date: 20130911
  Receipt Date: 20150729
  Transmission Date: 20151125
  Serious: Yes (Hospitalization, Disabling, Other)
  Sender: FDA-Public Use
  Company Number: US-SANOFI-AVENTIS-2013SA080472

PATIENT
  Age: 57 Year
  Sex: Male

DRUGS (1)
  1. AUBAGIO [Suspect]
     Active Substance: TERIFLUNOMIDE
     Indication: MULTIPLE SCLEROSIS
     Route: 048
     Dates: start: 20130713

REACTIONS (30)
  - Optic neuritis [Not Recovered/Not Resolved]
  - Feeling abnormal [Unknown]
  - Impaired driving ability [Unknown]
  - Hypersomnia [Unknown]
  - Intervertebral disc protrusion [Unknown]
  - Muscular weakness [Unknown]
  - Nausea [Unknown]
  - Feelings of worthlessness [Unknown]
  - Functional gastrointestinal disorder [Unknown]
  - Chest discomfort [Not Recovered/Not Resolved]
  - Muscle spasticity [Unknown]
  - Dyspnoea [Not Recovered/Not Resolved]
  - Dysarthria [Not Recovered/Not Resolved]
  - Musculoskeletal pain [Unknown]
  - Cough [Not Recovered/Not Resolved]
  - Thermal burn [Unknown]
  - Disturbance in attention [Unknown]
  - Abasia [Unknown]
  - Nephrolithiasis [Unknown]
  - Fall [Unknown]
  - Visual acuity reduced [Not Recovered/Not Resolved]
  - Depression [Unknown]
  - Decreased appetite [Unknown]
  - Fatigue [Unknown]
  - Stress [Unknown]
  - Diplegia [Unknown]
  - Fatigue [Not Recovered/Not Resolved]
  - Dysgraphia [Unknown]
  - Balance disorder [Unknown]
  - Paraesthesia [Unknown]

NARRATIVE: CASE EVENT DATE: 2013
